FAERS Safety Report 11635901 (Version 4)
Quarter: 2015Q4

REPORT INFORMATION
  Report Type: Report from Study
  Country: US (occurrence: US)
  Receive Date: 20151016
  Receipt Date: 20151028
  Transmission Date: 20160304
  Serious: Yes (Death, Other)
  Sender: FDA-Public Use
  Company Number: US-AMGEN-USASP2015107822

PATIENT
  Age: 57 Year
  Sex: Male
  Weight: 63.4 kg

DRUGS (8)
  1. 5-FU                               /00098801/ [Concomitant]
     Active Substance: FLUOROURACIL
     Indication: COLORECTAL ADENOCARCINOMA
     Dosage: 828 MG, Q2WKS
     Route: 065
     Dates: start: 20121105, end: 20140514
  2. NEULASTA [Suspect]
     Active Substance: PEGFILGRASTIM
     Indication: PRODUCT USED FOR UNKNOWN INDICATION
     Dosage: 6 MG, Q28D
     Route: 058
     Dates: start: 20121107, end: 20140430
  3. OXALIPLATIN. [Concomitant]
     Active Substance: OXALIPLATIN
     Indication: COLORECTAL ADENOCARCINOMA
     Dosage: 176 MG, Q2WKS
     Route: 065
     Dates: start: 20121105, end: 20140514
  4. STIVARGA [Concomitant]
     Active Substance: REGORAFENIB
     Indication: COLORECTAL ADENOCARCINOMA
     Dosage: 40 MG, DAILY
     Route: 048
     Dates: start: 20141001, end: 20141231
  5. CAMPTOSAR [Concomitant]
     Active Substance: IRINOTECAN HYDROCHLORIDE
     Indication: COLORECTAL ADENOCARCINOMA
     Dosage: 330 MG, Q2WKS
     Route: 065
     Dates: start: 20121203, end: 20140731
  6. TESTOSTERONE. [Concomitant]
     Active Substance: TESTOSTERONE
     Dosage: 200 MG, Q2WKS
     Route: 030
  7. 5-FU                               /00098801/ [Concomitant]
     Active Substance: FLUOROURACIL
     Dosage: 4968 MG, Q2WKS
     Route: 065
     Dates: start: 20121105, end: 20140514
  8. AVASTIN [Concomitant]
     Active Substance: BEVACIZUMAB
     Indication: COLORECTAL ADENOCARCINOMA
     Dosage: 477 MG, Q2WKS
     Route: 065
     Dates: start: 20121120, end: 20140602

REACTIONS (1)
  - Death [Fatal]

NARRATIVE: CASE EVENT DATE: 20151007
